FAERS Safety Report 20646803 (Version 4)
Quarter: 2022Q3

REPORT INFORMATION
  Report Type: Report from Study
  Country: US (occurrence: US)
  Receive Date: 20220329
  Receipt Date: 20220701
  Transmission Date: 20221027
  Serious: Yes (Death, Hospitalization)
  Sender: FDA-Public Use
  Company Number: US-EXELIXIS-CABO-22047957

PATIENT
  Age: 50 Year
  Sex: Male
  Weight: 81.63 kg

DRUGS (13)
  1. CABOMETYX [Suspect]
     Active Substance: CABOZANTINIB S-MALATE
     Indication: Renal cancer
     Dosage: 40 MG, QD
     Route: 048
     Dates: start: 20220104
  2. CABOMETYX [Suspect]
     Active Substance: CABOZANTINIB S-MALATE
     Dosage: 40 MG
     Route: 048
  3. LORATADINE [Concomitant]
     Active Substance: LORATADINE
  4. FLUDROCORTISONE ACETATE [Concomitant]
     Active Substance: FLUDROCORTISONE ACETATE
  5. LISINOPRIL [Concomitant]
     Active Substance: LISINOPRIL
  6. PRAVASTATIN SODIUM [Concomitant]
     Active Substance: PRAVASTATIN SODIUM
  7. Vitamins to go! Specially formulated for MEN [Concomitant]
  8. HYDROCORTISONE [Concomitant]
     Active Substance: HYDROCORTISONE
  9. PIOGLITAZONE [Concomitant]
     Active Substance: PIOGLITAZONE
  10. PFIZER-BIONTECH COVID-19 VACCINE [Concomitant]
     Active Substance: TOZINAMERAN
  11. JANUVIA [Concomitant]
     Active Substance: SITAGLIPTIN PHOSPHATE
  12. JARDIANCE [Concomitant]
     Active Substance: EMPAGLIFLOZIN
  13. BELZUTIFAN [Concomitant]
     Active Substance: BELZUTIFAN

REACTIONS (6)
  - Blister [Unknown]
  - Pleural effusion [Unknown]
  - Diarrhoea [Unknown]
  - Death [Fatal]
  - Somnolence [Unknown]
  - Pain [Unknown]

NARRATIVE: CASE EVENT DATE: 20220104
